FAERS Safety Report 11787615 (Version 2)
Quarter: 2016Q1

REPORT INFORMATION
  Report Type: Spontaneous
  Country: US (occurrence: US)
  Receive Date: 20151130
  Receipt Date: 20160112
  Transmission Date: 20160525
  Serious: No
  Sender: FDA-Public Use
  Company Number: US-ACTELION PHARMACEUTICALS US, INC.-A-US2015-127839

PATIENT
  Age: 58 Year
  Sex: Male

DRUGS (2)
  1. VALCHLOR [Suspect]
     Active Substance: MECHLORETHAMINE
     Indication: MYCOSIS FUNGOIDES
     Dosage: UNK
     Route: 061
     Dates: start: 20150616, end: 201511
  2. CORTISONE [Concomitant]
     Active Substance: CORTISONE\HYDROCORTISONE

REACTIONS (5)
  - Application site pruritus [Unknown]
  - Application site vesicles [Recovering/Resolving]
  - Application site reaction [Unknown]
  - Application site swelling [Recovering/Resolving]
  - Application site pain [Unknown]

NARRATIVE: CASE EVENT DATE: 20151109
